FAERS Safety Report 4956090-0 (Version None)
Quarter: 2006Q1

REPORT INFORMATION
  Report Type: 
  Country: None (occurrence: None)
  Receive Date: 20060328
  Receipt Date: 20051215
  Transmission Date: 20060701
  Serious: Yes (Hospitalization)
  Sender: FDA-Public Use
  Company Number: US-MERCK-0512USA02528

PATIENT
  Age: 73 Year
  Sex: Female
  Weight: 107 kg

DRUGS (9)
  1. CENTRUM [Concomitant]
     Route: 065
     Dates: start: 19970101
  2. DEMADEX [Concomitant]
     Route: 065
     Dates: start: 19800101
  3. VIOXX [Suspect]
     Indication: ARTHRITIS
     Route: 048
     Dates: start: 19990101, end: 20031101
  4. K-DUR 10 [Concomitant]
     Route: 065
     Dates: start: 19980101
  5. ZYRTEC [Concomitant]
     Route: 065
  6. ISOSORBIDE DINITRATE [Concomitant]
     Route: 065
     Dates: start: 19990101
  7. FOLIC ACID [Concomitant]
     Route: 065
     Dates: start: 20020101
  8. CARAFATE [Concomitant]
     Route: 065
  9. FEOSOL [Concomitant]
     Route: 065
     Dates: start: 19980101

REACTIONS (1)
  - CEREBROVASCULAR ACCIDENT [None]
